FAERS Safety Report 16423866 (Version 1)
Quarter: 2019Q2

REPORT INFORMATION
  Report Type: Spontaneous
  Country: GB (occurrence: GB)
  Receive Date: 20190613
  Receipt Date: 20190613
  Transmission Date: 20190711
  Serious: Yes (Other)
  Sender: FDA-Public Use
  Company Number: GB-SAMSUNG BIOEPIS-SB-2019-14095

PATIENT
  Age: 65 Year
  Sex: Female
  Weight: 62.5 kg

DRUGS (1)
  1. ONTRUZANT [Suspect]
     Active Substance: TRASTUZUMAB-DTTB
     Indication: BREAST CANCER
     Dosage: 7 MINUTES OUT OF 40 MINUTE 378MG INFUSION GIVEN.
     Route: 042
     Dates: start: 20181011, end: 20181011

REACTIONS (11)
  - Dizziness [Recovered/Resolved]
  - Tongue pruritus [Recovered/Resolved]
  - Tongue disorder [Recovered/Resolved]
  - Flushing [Recovered/Resolved]
  - Feeling hot [Recovered/Resolved]
  - Pruritus [Recovered/Resolved]
  - Dyspnoea [Recovered/Resolved]
  - Erythema [Recovered/Resolved]
  - Dermatitis allergic [Recovered/Resolved]
  - Cold sweat [Recovered/Resolved]
  - Presyncope [Recovered/Resolved]

NARRATIVE: CASE EVENT DATE: 20181011
